FAERS Safety Report 4680417-0 (Version None)
Quarter: 2005Q2

REPORT INFORMATION
  Report Type: 
  Country: None (occurrence: None)
  Receive Date: 20050601
  Receipt Date: 20050512
  Transmission Date: 20051028
  Serious: Yes (Other)
  Sender: FDA-Public Use
  Company Number: EWC050544011

PATIENT
  Age: 74 Year
  Sex: Female

DRUGS (4)
  1. OLANZAPINE [Suspect]
     Indication: MENTAL DISORDER
     Dosage: 5 MG/1 DAY
     Dates: start: 20030101, end: 20050401
  2. VENLAFAXINE HCL [Concomitant]
  3. MIRTAZAPINE [Concomitant]
  4. GALANTAMIN [Concomitant]

REACTIONS (4)
  - BLOOD AMYLASE INCREASED [None]
  - BLOOD CALCIUM INCREASED [None]
  - BLOOD CREATINE PHOSPHOKINASE INCREASED [None]
  - LIPASE INCREASED [None]
